FAERS Safety Report 6004259-9 (Version None)
Quarter: 2008Q4

REPORT INFORMATION
  Report Type: 
  Country: None (occurrence: None)
  Receive Date: 20081216
  Receipt Date: 20081203
  Transmission Date: 20090506
  Serious: Yes (Death)
  Sender: FDA-Public Use
  Company Number: JP-PFIZER INC-2008150552

PATIENT

DRUGS (5)
  1. ZYVOX [Suspect]
     Indication: SPONDYLITIS
     Dosage: 600 MG, 2X/DAY
     Route: 048
  2. NEUPHAGEN [Concomitant]
  3. FUROSEMID [Concomitant]
  4. SPIROLACTONE [Concomitant]
     Route: 048
  5. RABEPRAZOLE [Concomitant]

REACTIONS (2)
  - HAEMOGLOBIN DECREASED [None]
  - PLATELET COUNT DECREASED [None]
